FAERS Safety Report 6801564-0 (Version None)
Quarter: 2010Q2

REPORT INFORMATION
  Report Type: 
  Country: None (occurrence: None)
  Receive Date: 20100629
  Receipt Date: 20100625
  Transmission Date: 20101027
  Serious: Yes (Death, Life-Threatening, Hospitalization)
  Sender: FDA-Public Use
  Company Number: DE-ASTRAZENECA-2010SE12359

PATIENT
  Age: 29527 Day
  Sex: Female
  Weight: 86 kg

DRUGS (7)
  1. MERONEM [Suspect]
     Indication: PERITONITIS
     Route: 042
     Dates: start: 20100209, end: 20100216
  2. MERONEM [Suspect]
     Indication: SEPSIS
     Route: 042
     Dates: start: 20100209, end: 20100216
  3. MERONEM [Suspect]
     Indication: SEPTIC SHOCK
     Route: 042
     Dates: start: 20100209, end: 20100216
  4. FLUCONAZOLE [Concomitant]
     Indication: PERITONITIS
     Route: 042
     Dates: start: 20100219, end: 20100224
  5. VANCOMYCIN [Concomitant]
     Indication: PERITONITIS
     Dosage: ACCORDING TO LEVEL
     Dates: start: 20100209, end: 20100224
  6. PIPRIL [Concomitant]
     Indication: HAEMOSTASIS
     Route: 042
     Dates: start: 20100206, end: 20100209
  7. COMBACTAM [Concomitant]
     Indication: HAEMOSTASIS
     Route: 042
     Dates: start: 20100206, end: 20100209

REACTIONS (3)
  - CHOLESTASIS [None]
  - JAUNDICE [None]
  - MULTI-ORGAN FAILURE [None]
